FAERS Safety Report 9278748 (Version 1)
Quarter: 2013Q2

REPORT INFORMATION
  Report Type: Spontaneous
  Country: PT (occurrence: None)
  Receive Date: 20130501
  Receipt Date: 20130501
  Transmission Date: 20140414
  Serious: Yes (Life-Threatening, Disabling)
  Sender: FDA-Public Use
  Company Number: 1693310

PATIENT
  Age: 72 Year
  Sex: Female
  Weight: 52 kg

DRUGS (7)
  1. DOCETAXEL [Suspect]
     Indication: BREAST CANCER
     Dosage: CYCLICAL
     Route: 042
     Dates: start: 20130322
  2. (LISINOPRIL/HYDROCHLOROTHIAZIDE) [Concomitant]
  3. (METOCLOPRAMIDE) [Concomitant]
  4. (DEXAMETHASONE) [Concomitant]
  5. SINVASTATINA [Concomitant]
  6. GRANISETRON) [Concomitant]
  7. (NACL) [Concomitant]

REACTIONS (7)
  - Oedema mouth [None]
  - Tongue oedema [None]
  - Dysphagia [None]
  - Onychomadesis [None]
  - Palmar-plantar erythrodysaesthesia syndrome [None]
  - Pain [None]
  - Toxicity to various agents [None]
